FAERS Safety Report 9213032 (Version 1)
Quarter: 2013Q1

REPORT INFORMATION
  Report Type: Spontaneous
  Country: US (occurrence: None)
  Receive Date: 20120820
  Receipt Date: 20120820
  Transmission Date: 20140127
  Serious: No
  Sender: FDA-Public Use
  Company Number: 1000036716

PATIENT
  Age: 48 Year
  Sex: Female

DRUGS (11)
  1. VIIBRYD [Suspect]
     Indication: DEPRESSION
     Route: 048
     Dates: start: 2012, end: 2012
  2. PROZAC (FLUOXETINE HYDROCHLORIDE) [Suspect]
     Indication: DEPRESSION
     Dates: start: 201206
  3. LISINOPRIL (LISINOPRIL) (LISINOPRIL) [Concomitant]
  4. AMLODIPINE (AMLODIPINE) (AMLODIPINE) [Concomitant]
  5. FLONASE (FLUTICASONE PROPIONATE) (FLUTICASONE PROPIONATE) [Concomitant]
  6. BYSTOLIC (NEBIVOLOL HYDROCHLORIDE) (NEBIVOLOL HYDROCHLORIDE) [Concomitant]
  7. DIOVAN (VALSARTAN) (VALSARTAN) [Concomitant]
  8. ZYRTEC (CETIRIZINE HYDROCHLORIDE) (CETIRIZINE HYDROCHLORIDE) [Concomitant]
  9. VESICARE (SOLIFENACIN SUCCINATE) (SOLIFENACIN SUCCINATE) [Concomitant]
  10. NEXIUM (ESOMEPRAZOLE) (ESOMEPRAZOLE) [Concomitant]
  11. LASIX (FUROSEMIDE) (FUROSEMIDE) [Concomitant]

REACTIONS (5)
  - Hallucination, visual [None]
  - Diarrhoea [None]
  - Nausea [None]
  - Dyspepsia [None]
  - Weight decreased [None]
